FAERS Safety Report 5337462-1 (Version None)
Quarter: 2007Q2

REPORT INFORMATION
  Report Type: 
  Country: None (occurrence: None)
  Receive Date: 20070524
  Receipt Date: 20070514
  Transmission Date: 20071010
  Serious: Yes (Hospitalization)
  Sender: FDA-Public Use
  Company Number: 2007PV000023

PATIENT
  Age: 53 Year
  Sex: Female

DRUGS (4)
  1. CYTARABINE [Suspect]
     Indication: MENINGEAL DISORDER
     Dosage: 50 MG;X1;INTH
     Route: 055
     Dates: start: 20070405, end: 20070405
  2. METHOTREXATE SODIUM [Concomitant]
  3. CORTICOSTEROIDS [Concomitant]
  4. CYTARABINE [Concomitant]

REACTIONS (2)
  - APHASIA [None]
  - VASCULITIS CEREBRAL [None]
